FAERS Safety Report 23271130 (Version 3)
Quarter: 2024Q1

REPORT INFORMATION
  Report Type: Spontaneous
  Country: BY (occurrence: BY)
  Receive Date: 20231207
  Receipt Date: 20240122
  Transmission Date: 20240410
  Serious: Yes (Other)
  Sender: FDA-Public Use
  Company Number: BY-TAKEDA-2023TUS117499

PATIENT
  Sex: Female

DRUGS (1)
  1. ADCETRIS [Suspect]
     Active Substance: BRENTUXIMAB VEDOTIN
     Indication: Hodgkin^s disease recurrent
     Dosage: UNK
     Route: 065
     Dates: start: 20230405, end: 20231024

REACTIONS (3)
  - Toxic neuropathy [Not Recovered/Not Resolved]
  - Quadriparesis [Not Recovered/Not Resolved]
  - Ataxia [Not Recovered/Not Resolved]
